FAERS Safety Report 10568223 (Version 1)
Quarter: 2014Q4

REPORT INFORMATION
  Report Type: Spontaneous
  Country: US (occurrence: None)
  Receive Date: 20141024
  Receipt Date: 20141024
  Transmission Date: 20150529
  Serious: No
  Sender: FDA-Public Use
  Company Number: 1441257

PATIENT
  Age: 4 Decade
  Sex: Male

DRUGS (1)
  1. ZELBORAF [Suspect]
     Active Substance: VEMURAFENIB
     Indication: MALIGNANT MELANOMA
     Route: 048
     Dates: start: 2014

REACTIONS (2)
  - Pancreatitis [None]
  - Foreign body [None]

NARRATIVE: CASE EVENT DATE: 201407
